FAERS Safety Report 8838904 (Version 1)
Quarter: 2012Q4

REPORT INFORMATION
  Report Type: Spontaneous
  Country: US (occurrence: None)
  Receive Date: 20121011
  Receipt Date: 20121011
  Transmission Date: 20130627
  Serious: No
  Sender: FDA-Public Use
  Company Number: None

PATIENT
  Age: 56 Year
  Sex: Male
  Weight: 91.9 kg

DRUGS (12)
  1. GEMCITABINE [Suspect]
     Dosage: 2200 mg IV
     Route: 042
     Dates: start: 20120505
  2. CISPLATIN [Suspect]
     Dosage: 80mg IV
     Route: 042
     Dates: start: 20120505
  3. 5-FLUOROURACIL [Suspect]
  4. SODIUM CHLORIDE FLUSH [Concomitant]
  5. AMLODIPINE [Concomitant]
  6. BENAZEPRIL [Concomitant]
  7. EMLA CREAM [Concomitant]
  8. HEPARIN PORCINE [Concomitant]
  9. HYDROCODONE ACETAMINOPHINE [Concomitant]
  10. OMEPRAZOLE [Concomitant]
  11. ONDANSETRON [Concomitant]
  12. PROCHLORPERAZINE [Concomitant]

REACTIONS (3)
  - Nausea [None]
  - Vomiting [None]
  - Drug ineffective [None]
